FAERS Safety Report 7168068-X (Version None)
Quarter: 2010Q4

REPORT INFORMATION
  Report Type: 
  Country: None (occurrence: None)
  Receive Date: 20101216
  Receipt Date: 20101204
  Transmission Date: 20110411
  Serious: Yes (Other)
  Sender: FDA-Public Use
  Company Number: PHHY2010US82895

PATIENT
  Sex: Male

DRUGS (1)
  1. EXJADE [Suspect]
     Dosage: UNK
     Route: 048

REACTIONS (3)
  - HEPATIC FIBROSIS [None]
  - PANCYTOPENIA [None]
  - PHLEBOTOMY [None]
